FAERS Safety Report 12811297 (Version 1)
Quarter: 2016Q4

REPORT INFORMATION
  Report Type: Spontaneous
  Country: US (occurrence: US)
  Receive Date: 20161005
  Receipt Date: 20161005
  Transmission Date: 20170207
  Serious: No
  Sender: FDA-Public Use
  Company Number: None

PATIENT
  Age: 67 Year
  Sex: Female
  Weight: 78.47 kg

DRUGS (4)
  1. HYOSCYAMINE 0.125MG SUBLINGUAL TABLETS [Suspect]
     Active Substance: HYOSCYAMINE
     Indication: MUSCLE SPASMS
     Dosage: 1 TABLET UNDER TONGUE, EVERY 4 HOURS AS NEEDED FOR CRAMPING, I PUT IT UNDER MY TONGUE AND LET IT DISSOLVE
     Dates: start: 20160721, end: 20160725
  2. ALLAVERT D [Concomitant]
  3. HYOSCYAMINE 0.125MG SUBLINGUAL TABLETS [Suspect]
     Active Substance: HYOSCYAMINE
     Indication: VOMITING
     Dosage: 1 TABLET UNDER TONGUE, EVERY 4 HOURS AS NEEDED FOR CRAMPING, I PUT IT UNDER MY TONGUE AND LET IT DISSOLVE
     Dates: start: 20160721, end: 20160725
  4. HYOSCYAMINE 0.125MG SUBLINGUAL TABLETS [Suspect]
     Active Substance: HYOSCYAMINE
     Indication: DIARRHOEA
     Dosage: 1 TABLET UNDER TONGUE, EVERY 4 HOURS AS NEEDED FOR CRAMPING, I PUT IT UNDER MY TONGUE AND LET IT DISSOLVE
     Dates: start: 20160721, end: 20160725

REACTIONS (7)
  - Dry mouth [None]
  - Feeling hot [None]
  - Insomnia [None]
  - Urinary retention [None]
  - Gait disturbance [None]
  - Balance disorder [None]
  - Irritability [None]

NARRATIVE: CASE EVENT DATE: 20160724
